FAERS Safety Report 8182886-0 (Version None)
Quarter: 2012Q1

REPORT INFORMATION
  Report Type: 
  Country: None (occurrence: None)
  Receive Date: 20120305
  Receipt Date: 20120223
  Transmission Date: 20120608
  Serious: Yes (Hospitalization)
  Sender: FDA-Public Use
  Company Number: US-SANOFI-AVENTIS-2012SA012369

PATIENT
  Age: 78 Year
  Sex: Female

DRUGS (2)
  1. LANTUS [Suspect]
     Dosage: DOSE:38 UNIT(S)
     Route: 058
     Dates: start: 20110601
  2. SOLOSTAR [Suspect]
     Dates: start: 20110601

REACTIONS (6)
  - PRURITUS [None]
  - INJECTION SITE NODULE [None]
  - PNEUMONIA [None]
  - RETCHING [None]
  - UNEVALUABLE EVENT [None]
  - BLOOD GLUCOSE INCREASED [None]
